FAERS Safety Report 10090826 (Version 2)
Quarter: 2014Q2

REPORT INFORMATION
  Report Type: Spontaneous
  Country: US (occurrence: US)
  Receive Date: 20140421
  Receipt Date: 20140421
  Transmission Date: 20141212
  Serious: No
  Sender: FDA-Public Use
  Company Number: US-GILEAD-2012-0062127

PATIENT
  Age: 84 Year
  Sex: Female

DRUGS (1)
  1. LETAIRIS [Suspect]
     Indication: PRODUCT USED FOR UNKNOWN INDICATION
     Dosage: 5 MG, UNK
     Route: 048
     Dates: start: 20120906

REACTIONS (6)
  - Nasopharyngitis [Unknown]
  - Laryngitis [Unknown]
  - Pruritus [Unknown]
  - Skin disorder [Unknown]
  - Peripheral swelling [Unknown]
  - Oedema [Unknown]
